FAERS Safety Report 7247424-5 (Version None)
Quarter: 2011Q1

REPORT INFORMATION
  Report Type: 
  Country: None (occurrence: None)
  Receive Date: 20110127
  Receipt Date: 20110118
  Transmission Date: 20110831
  Serious: Yes (Other)
  Sender: FDA-Public Use
  Company Number: PHHY2011PT04021

PATIENT
  Sex: Female

DRUGS (1)
  1. VOLTAREN [Suspect]
     Dosage: 50 MG DAILY
     Route: 048
     Dates: start: 20100101

REACTIONS (5)
  - RASH MACULO-PAPULAR [None]
  - DYSPHONIA [None]
  - FACE OEDEMA [None]
  - RASH PRURITIC [None]
  - TONGUE OEDEMA [None]
